FAERS Safety Report 9089298 (Version 6)
Quarter: 2013Q3

REPORT INFORMATION
  Report Type: Report from Study
  Country: IT (occurrence: IT)
  Receive Date: 20130201
  Receipt Date: 20130705
  Transmission Date: 20140515
  Serious: Yes (Life-Threatening, Hospitalization)
  Sender: FDA-Public Use
  Company Number: IT-BAXTER-2013BAX003539

PATIENT
  Age: 73 Year
  Sex: Male
  Weight: 79 kg

DRUGS (37)
  1. ENDOXAN BAXTER [Suspect]
     Indication: DIFFUSE LARGE B-CELL LYMPHOMA
     Route: 065
     Dates: start: 20121123
  2. ENDOXAN BAXTER [Suspect]
     Route: 065
     Dates: start: 20130206
  3. ENDOXAN BAXTER [Suspect]
     Route: 065
     Dates: start: 20130227
  4. RHUPH20 [Suspect]
     Indication: DIFFUSE LARGE B-CELL LYMPHOMA
     Route: 058
     Dates: start: 20130116
  5. RHUPH20 [Suspect]
     Route: 058
     Dates: start: 20130206
  6. RHUPH20 [Suspect]
     Route: 058
     Dates: start: 20130227
  7. DOXORUBICIN [Suspect]
     Indication: DIFFUSE LARGE B-CELL LYMPHOMA
     Route: 065
     Dates: start: 20121123
  8. DOXORUBICIN [Suspect]
     Route: 065
     Dates: start: 20130206
  9. DOXORUBICIN [Suspect]
     Route: 065
     Dates: start: 20130227
  10. VINCRISTINE [Suspect]
     Indication: DIFFUSE LARGE B-CELL LYMPHOMA
     Route: 042
     Dates: start: 20121123
  11. VINCRISTINE [Suspect]
     Route: 065
     Dates: start: 20130206
  12. VINCRISTINE [Suspect]
     Route: 065
     Dates: start: 20130227
  13. PREDNISONE [Suspect]
     Indication: DIFFUSE LARGE B-CELL LYMPHOMA
     Route: 065
     Dates: start: 20121123
  14. PREDNISONE [Suspect]
     Route: 065
     Dates: start: 20121107, end: 20121122
  15. PREDNISONE [Suspect]
     Route: 065
     Dates: start: 20130206
  16. PREDNISONE [Suspect]
     Route: 065
     Dates: start: 20130227
  17. RITUXIMAB [Suspect]
     Indication: DIFFUSE LARGE B-CELL LYMPHOMA
     Route: 042
     Dates: start: 20121123
  18. CHLORHEXIDINE GLUCONATE [Concomitant]
     Indication: PROPHYLAXIS
     Route: 048
     Dates: start: 20121122
  19. LANSOPRAZOLE [Concomitant]
     Indication: PROPHYLAXIS AGAINST GASTROINTESTINAL ULCER
     Route: 048
     Dates: start: 20121107, end: 20130330
  20. PARACETAMOL [Concomitant]
     Indication: VOMITING
     Route: 048
     Dates: start: 20121107
  21. PARACETAMOL [Concomitant]
     Route: 048
     Dates: start: 20121130, end: 20130330
  22. CONTRAMAL [Concomitant]
     Indication: PAIN
     Dosage: 15 DROPS
     Route: 048
     Dates: start: 20121107
  23. CLEXANE [Concomitant]
     Indication: PROPHYLAXIS
     Route: 058
     Dates: start: 20121107, end: 20130330
  24. CYANOCOBALAMIN [Concomitant]
     Indication: ANAEMIA
     Route: 030
     Dates: start: 20121107, end: 20121129
  25. ALLOPURINOL [Concomitant]
     Indication: HYPERURICAEMIA
     Route: 048
     Dates: start: 20121120, end: 20130330
  26. ONDANSETRON [Concomitant]
     Indication: NAUSEA
     Route: 048
     Dates: start: 20121122, end: 20130330
  27. ONDANSETRON [Concomitant]
     Indication: VOMITING
  28. NYSTATIN [Concomitant]
     Indication: FUNGAL INFECTION
     Route: 048
     Dates: start: 20121122, end: 20130330
  29. CALCITRIOL [Concomitant]
     Indication: PRODUCT USED FOR UNKNOWN INDICATION
     Route: 065
     Dates: start: 20121205, end: 20121217
  30. CALCIUM GLUCONATE [Concomitant]
     Indication: PRODUCT USED FOR UNKNOWN INDICATION
     Route: 065
     Dates: start: 20121205, end: 20121217
  31. CHLORHEXIDINE [Concomitant]
     Indication: PRODUCT USED FOR UNKNOWN INDICATION
     Route: 048
     Dates: start: 20121122, end: 20130330
  32. CALCIPARINA [Concomitant]
     Indication: PRODUCT USED FOR UNKNOWN INDICATION
     Route: 065
     Dates: start: 20121217, end: 20130101
  33. OMNIC [Concomitant]
     Indication: PRODUCT USED FOR UNKNOWN INDICATION
     Route: 065
     Dates: start: 20121221
  34. OMNIC [Concomitant]
     Route: 048
     Dates: start: 20130115, end: 20130330
  35. TRAVOPROST [Concomitant]
     Indication: PRODUCT USED FOR UNKNOWN INDICATION
     Route: 065
     Dates: start: 20130115, end: 20130330
  36. G-CSF [Concomitant]
     Indication: PRODUCT USED FOR UNKNOWN INDICATION
     Route: 065
  37. CLINIMIX [Concomitant]

REACTIONS (5)
  - Febrile neutropenia [Recovered/Resolved]
  - Erysipelas [Recovered/Resolved]
  - Oral candidiasis [Recovered/Resolved]
  - Oedema peripheral [Recovered/Resolved]
  - Neutropenia [Recovered/Resolved]
